FAERS Safety Report 7927965-5 (Version None)
Quarter: 2011Q4

REPORT INFORMATION
  Report Type: 
  Country: None (occurrence: None)
  Receive Date: 20111116
  Receipt Date: 20111101
  Transmission Date: 20120403
  Serious: Yes (Hospitalization)
  Sender: FDA-Public Use
  Company Number: 2009S1006311

PATIENT
  Age: 72 Year
  Sex: Female
  Weight: 89.8122 kg

DRUGS (12)
  1. FLEET ENEMA (SODIUM PHOSPHATE0 [Suspect]
     Indication: COLONOSCOPY
     Dosage: 266 ML;TOTAL;RTL
     Route: 054
     Dates: start: 20080814, end: 20080814
  2. QUINAPRIL [Concomitant]
  3. CLONIDINE [Concomitant]
  4. HYDROCHLOROTHIAZIDE [Concomitant]
  5. ACTOS [Concomitant]
  6. METRONIDAZOLE [Concomitant]
  7. METFORMIN HCL [Concomitant]
  8. SODIUM PHOSPHATE MONOBASIC MONOHYDRATE AND NAPO4 DIBASIC ANHYDROUS [Suspect]
     Indication: COLONOSCOPY
     Dosage: 90 ML;TOTAL;PO
     Route: 048
     Dates: start: 20080813, end: 20080813
  9. SODIUM PHOSPHATE MONOBASIC MONOHYDRATE AND NAPO4 DIBASIC ANHYDROUS [Suspect]
     Indication: OESOPHAGOGASTRODUODENOSCOPY
     Dosage: 90 ML;TOTAL;PO
     Route: 048
     Dates: start: 20080813, end: 20080813
  10. LOVASTATIN [Concomitant]
  11. CIPRO [Concomitant]
  12. IRON [Concomitant]

REACTIONS (11)
  - VOMITING [None]
  - HYPONATRAEMIA [None]
  - RENAL FAILURE ACUTE [None]
  - PANCREATITIS [None]
  - BENIGN TUMOUR EXCISION [None]
  - DYSGEUSIA [None]
  - DEHYDRATION [None]
  - DIALYSIS [None]
  - HYPOCALCAEMIA [None]
  - METABOLIC ACIDOSIS [None]
  - RENAL FAILURE CHRONIC [None]
